FAERS Safety Report 9832168 (Version 1)
Quarter: 2014Q1

REPORT INFORMATION
  Report Type: Spontaneous
  Country: US (occurrence: US)
  Receive Date: 20140121
  Receipt Date: 20140121
  Transmission Date: 20141002
  Serious: No
  Sender: FDA-Public Use
  Company Number: US-PFIZER INC-2014016757

PATIENT
  Sex: Female

DRUGS (2)
  1. INDERAL LA [Suspect]
     Indication: MIGRAINE
     Dosage: 80 MG, UNK
     Route: 048
     Dates: start: 201311
  2. ZANAFLEX [Suspect]
     Indication: MIGRAINE
     Dosage: UNK
     Dates: start: 201311

REACTIONS (1)
  - Drug screen positive [Unknown]
